FAERS Safety Report 8861292 (Version 2)
Quarter: 2012Q4

REPORT INFORMATION
  Report Type: 
  Country: US (occurrence: US)
  Receive Date: 20121026
  Receipt Date: 20121221
  Transmission Date: 20130627
  Serious: No
  Sender: FDA-Public Use
  Company Number: US-PFIZER INC-2012265730

PATIENT
  Sex: Male

DRUGS (4)
  1. ACCUPRIL [Suspect]
     Dosage: UNK
  2. ACCUPRIL [Suspect]
     Dosage: 40 mg, UNK
  3. NORVASC [Suspect]
     Dosage: UNK
  4. NORVASC [Suspect]
     Dosage: 5 mg, UNK

REACTIONS (2)
  - Nasopharyngitis [Unknown]
  - Sinusitis [Unknown]
